FAERS Safety Report 7732022-7 (Version None)
Quarter: 2011Q3

REPORT INFORMATION
  Report Type: 
  Country: None (occurrence: None)
  Receive Date: 20110906
  Receipt Date: 20110729
  Transmission Date: 20111222
  Serious: No
  Sender: FDA-Public Use
  Company Number: US-AMGEN-USASP2011038599

PATIENT
  Age: 75 Year
  Sex: Female

DRUGS (5)
  1. CALCIUM CARBONATE [Concomitant]
  2. PROLIA [Suspect]
     Indication: OSTEOPOROSIS POSTMENOPAUSAL
     Dosage: 60 MG, Q6MO
     Dates: start: 20110330
  3. ASPIRIN [Concomitant]
  4. LIPITOR [Concomitant]
  5. TOPROL-XL [Concomitant]

REACTIONS (2)
  - INCREASED TENDENCY TO BRUISE [None]
  - CONTUSION [None]
